FAERS Safety Report 8468195-0 (Version None)
Quarter: 2012Q2

REPORT INFORMATION
  Report Type: 
  Country: None (occurrence: None)
  Receive Date: 20120626
  Receipt Date: 20120613
  Transmission Date: 20120825
  Serious: No
  Sender: FDA-Public Use
  Company Number: US-ASTRAZENECA-2012SE28662

PATIENT
  Age: 54 Year
  Sex: Female
  Weight: 68 kg

DRUGS (4)
  1. SYMBICORT [Suspect]
     Dosage: 1 PUFF BID
     Route: 055
  2. SYMBICORT [Suspect]
     Dosage: 160/ 4.5 MCG, 2 PUFFS BID
     Route: 055
  3. XANAX [Concomitant]
     Indication: INSOMNIA
  4. SYMBICORT [Suspect]
     Indication: ASTHMA
     Dosage: 640 MCG, BID
     Route: 055

REACTIONS (3)
  - INTENTIONAL DRUG MISUSE [None]
  - OFF LABEL USE [None]
  - DYSPNOEA [None]
